FAERS Safety Report 12074830 (Version 1)
Quarter: 2016Q1

REPORT INFORMATION
  Report Type: Spontaneous
  Country: AT (occurrence: AT)
  Receive Date: 20160212
  Receipt Date: 20160212
  Transmission Date: 20160526
  Serious: Yes (Other)
  Sender: FDA-Public Use
  Company Number: AT-ELI_LILLY_AND_COMPANY-AT201602000067

PATIENT
  Age: 23 Year
  Sex: Male

DRUGS (13)
  1. ZYPREXA [Interacting]
     Active Substance: OLANZAPINE
     Indication: BIPOLAR I DISORDER
     Dosage: 10 MG, QD
     Route: 065
     Dates: start: 20160108, end: 20160108
  2. GEWACALM [Concomitant]
     Active Substance: DIAZEPAM
     Dosage: 15 MG, QD
     Route: 065
     Dates: start: 20160119, end: 20160119
  3. HALDOL [Interacting]
     Active Substance: HALOPERIDOL
     Dosage: 5 MG, QD
     Route: 065
     Dates: start: 20160109, end: 20160109
  4. AKINETON [Interacting]
     Active Substance: BIPERIDEN HYDROCHLORIDE
     Indication: PRODUCT USED FOR UNKNOWN INDICATION
     Dosage: 4 MG, QD
     Route: 065
     Dates: start: 20160105, end: 20160111
  5. GEWACALM [Concomitant]
     Active Substance: DIAZEPAM
     Indication: PRODUCT USED FOR UNKNOWN INDICATION
     Dosage: 25 MG, QD
     Route: 065
     Dates: start: 20160103, end: 20160113
  6. GEWACALM [Concomitant]
     Active Substance: DIAZEPAM
     Dosage: 20 MG, QD
     Route: 065
     Dates: start: 20160114, end: 20160118
  7. CONVULEX                           /00052501/ [Suspect]
     Active Substance: CARBAMAZEPINE
     Dosage: 900 MG, QD
     Route: 065
     Dates: start: 20160112, end: 20160112
  8. HALDOL [Interacting]
     Active Substance: HALOPERIDOL
     Indication: PRODUCT USED FOR UNKNOWN INDICATION
     Dosage: 10 MG, QD
     Route: 065
     Dates: start: 20160101, end: 20160108
  9. ZYPREXA [Interacting]
     Active Substance: OLANZAPINE
     Dosage: 25 MG, QD
     Route: 065
     Dates: start: 20160114
  10. CONVULEX                           /00052501/ [Suspect]
     Active Substance: CARBAMAZEPINE
     Indication: PRODUCT USED FOR UNKNOWN INDICATION
     Dosage: 2400 MG, QD
     Dates: start: 20160108, end: 20160110
  11. ZYPREXA [Interacting]
     Active Substance: OLANZAPINE
     Dosage: 20 MG, QD
     Route: 065
     Dates: start: 20160109, end: 20160113
  12. CONVULEX                           /00052501/ [Suspect]
     Active Substance: CARBAMAZEPINE
     Dosage: 1500 MG, QD
     Route: 065
     Dates: start: 20160111, end: 20160111
  13. GEWACALM [Concomitant]
     Active Substance: DIAZEPAM
     Dosage: 10 MG, UNKNOWN
     Route: 065
     Dates: start: 20160120

REACTIONS (4)
  - Drug interaction [Unknown]
  - Overdose [Unknown]
  - Delirium [Recovered/Resolved]
  - Drug level increased [Unknown]

NARRATIVE: CASE EVENT DATE: 20160109
